FAERS Safety Report 8065369-8 (Version None)
Quarter: 2012Q1

REPORT INFORMATION
  Report Type: 
  Country: None (occurrence: None)
  Receive Date: 20120117
  Receipt Date: 20120109
  Transmission Date: 20120608
  Serious: Yes (Death, Hospitalization)
  Sender: FDA-Public Use
  Company Number: WAES 1106FRA00080

PATIENT
  Age: 56 Year
  Sex: Female

DRUGS (10)
  1. TAB DARUNAVIR [Suspect]
     Indication: HIV INFECTION
     Dosage: 200 MG/BID PO ; 200 MG/BID PO
     Route: 048
     Dates: start: 20110513, end: 20110619
  2. TAB DARUNAVIR [Suspect]
     Indication: HIV INFECTION
     Dosage: 200 MG/BID PO ; 200 MG/BID PO
     Route: 048
     Dates: start: 20110429, end: 20110512
  3. SULFAMETHOXAZOLE AND TRIMETHOPRIM [Concomitant]
  4. RITONAVIR [Suspect]
     Indication: HIV INFECTION
     Dosage: 100 MG/DAILY PO ; 100  MG/DAILY PO
     Route: 048
     Dates: start: 20110513, end: 20110619
  5. RITONAVIR [Suspect]
     Indication: HIV INFECTION
     Dosage: 100 MG/DAILY PO ; 100  MG/DAILY PO
     Route: 048
     Dates: start: 20110429, end: 20110512
  6. TAB RALTEGRAVIR POTASSIUM 400 MG/BID [Suspect]
     Indication: HIV INFECTION
     Dosage: 400 MG/BID PO ; 400 MG/BID
     Route: 048
     Dates: start: 20110513, end: 20110619
  7. TAB RALTEGRAVIR POTASSIUM 400 MG/BID [Suspect]
     Indication: HIV INFECTION
     Dosage: 400 MG/BID PO ; 400 MG/BID
     Route: 048
     Dates: start: 20110429, end: 20110611
  8. ACETAMINOPHEN [Concomitant]
  9. GLYCERIN (+) MINERAL OIL (+) PETROLATUM, HYDROXYZINE HYDROCHLORIDE [Concomitant]
  10. ZOPICLONE [Concomitant]

REACTIONS (14)
  - ANURIA [None]
  - LUNG DISORDER [None]
  - DISSEMINATED INTRAVASCULAR COAGULATION [None]
  - CARDIO-RESPIRATORY ARREST [None]
  - SKIN TOXICITY [None]
  - DYSPHAGIA [None]
  - DIARRHOEA [None]
  - SEPTIC SHOCK [None]
  - DIALYSIS [None]
  - CYTOMEGALOVIRUS TEST POSITIVE [None]
  - PARAESTHESIA [None]
  - BLOOD CREATININE INCREASED [None]
  - DRUG RASH WITH EOSINOPHILIA AND SYSTEMIC SYMPTOMS [None]
  - MULTI-ORGAN FAILURE [None]
